FAERS Safety Report 7458469-4 (Version None)
Quarter: 2011Q2

REPORT INFORMATION
  Report Type: 
  Country: None (occurrence: None)
  Receive Date: 20110504
  Receipt Date: 20110426
  Transmission Date: 20111010
  Serious: Yes (Hospitalization)
  Sender: FDA-Public Use
  Company Number: R0001236A

PATIENT
  Age: 78 Year
  Sex: Male
  Weight: 82.73 kg

DRUGS (3)
  1. DIGOXIN [Suspect]
     Dosage: .125MG PER DAY
     Route: 048
     Dates: start: 20040201, end: 20081125
  2. FLU TRIVALENT SPLIT + AS03/2 [Suspect]
     Route: 030
     Dates: start: 20081020, end: 20081020
  3. TERAZOSIN HCL [Suspect]
     Dosage: 2MG PER DAY
     Route: 048
     Dates: start: 20060201, end: 20081125

REACTIONS (4)
  - BRADYCARDIA [None]
  - DYSPNOEA [None]
  - SLUGGISHNESS [None]
  - SYNCOPE [None]
